FAERS Safety Report 17816553 (Version 9)
Quarter: 2021Q3

REPORT INFORMATION
  Report Type: Spontaneous
  Country: US (occurrence: US)
  Receive Date: 20200522
  Receipt Date: 20210914
  Transmission Date: 20211014
  Serious: Yes (Other)
  Sender: FDA-Public Use
  Company Number: US-PFIZER INC-2018175310

PATIENT
  Age: 32 Year
  Sex: Male

DRUGS (7)
  1. XELJANZ [Suspect]
     Active Substance: TOFACITINIB CITRATE
     Indication: COLITIS ULCERATIVE
     Dosage: 10 MG, 2X/DAY FOR 8 WEEKS
     Route: 048
     Dates: start: 20180425, end: 2018
  2. FISH OIL [Concomitant]
     Active Substance: FISH OIL
     Dosage: UNK
  3. PREDNISONE. [Concomitant]
     Active Substance: PREDNISONE
     Dosage: UNK
  4. CELECOXIB. [Concomitant]
     Active Substance: CELECOXIB
     Dosage: UNK
  5. METHYLPREDNISOLONE. [Concomitant]
     Active Substance: METHYLPREDNISOLONE
     Dosage: UNK
  6. VICODIN [Concomitant]
     Active Substance: ACETAMINOPHEN\HYDROCODONE BITARTRATE
     Dosage: UNK
  7. XELJANZ [Suspect]
     Active Substance: TOFACITINIB CITRATE
     Dosage: 5 MG, 2X/DAY
     Route: 048
     Dates: start: 2018

REACTIONS (17)
  - Haemorrhage [Unknown]
  - Condition aggravated [Unknown]
  - Back pain [Unknown]
  - Frequent bowel movements [Recovered/Resolved]
  - Skin discolouration [Unknown]
  - Product dose omission issue [Unknown]
  - Hypoaesthesia [Unknown]
  - Inappropriate schedule of product administration [Unknown]
  - Arthralgia [Recovering/Resolving]
  - Oedema peripheral [Unknown]
  - Pain in extremity [Unknown]
  - Joint stiffness [Recovering/Resolving]
  - Fatigue [Unknown]
  - Sleep disorder [Unknown]
  - Feeling hot [Unknown]
  - Colitis ulcerative [Unknown]
  - Product dose omission in error [Unknown]

NARRATIVE: CASE EVENT DATE: 2018
